FAERS Safety Report 23126413 (Version 2)
Quarter: 2023Q4

REPORT INFORMATION
  Report Type: Spontaneous
  Country: US (occurrence: US)
  Receive Date: 20231030
  Receipt Date: 20231107
  Transmission Date: 20240110
  Serious: No
  Sender: FDA-Public Use
  Company Number: US-SA-SAC20231026000306

PATIENT
  Sex: Male

DRUGS (1)
  1. DUPIXENT [Suspect]
     Active Substance: DUPILUMAB
     Indication: Dermatitis atopic
     Dosage: 300 MG, QOW
     Route: 058
     Dates: start: 20221213

REACTIONS (6)
  - Discomfort [Not Recovered/Not Resolved]
  - Sleep disorder [Unknown]
  - Injection site reaction [Unknown]
  - Rash [Not Recovered/Not Resolved]
  - Intentional dose omission [Unknown]
  - Drug ineffective [Unknown]
